FAERS Safety Report 7302211-4 (Version None)
Quarter: 2011Q1

REPORT INFORMATION
  Report Type: 
  Country: None (occurrence: None)
  Receive Date: 20110218
  Receipt Date: 20110214
  Transmission Date: 20110831
  Serious: Yes (Other)
  Sender: FDA-Public Use
  Company Number: PHHY2011JP10569

PATIENT
  Age: 68 Year
  Sex: Female
  Weight: 39 kg

DRUGS (9)
  1. CARVEDILOL [Concomitant]
     Dosage: 1.25 MG, QD
  2. CARVEDILOL [Concomitant]
     Dosage: 5 MG, QD
  3. DISOPYRAMIDE [Concomitant]
     Dosage: 150 MG, QD
  4. FUROSEMIDE [Concomitant]
     Dosage: 20 MG, QD
  5. DIOVAN [Suspect]
     Dosage: 40 MG, QD
     Route: 048
  6. FUROSEMIDE [Concomitant]
     Dosage: 40 MG, QD
  7. SPIRONOLACTONE [Concomitant]
     Dosage: 25 MG, QD
  8. IMIDAPRIL HYDROCHLORIDE [Concomitant]
     Dosage: 2.5 MG, QD
  9. BISOPROLOL FUMARATE [Concomitant]
     Dosage: 2.5 MG, QD

REACTIONS (3)
  - HEART RATE DECREASED [None]
  - BLOOD PRESSURE DECREASED [None]
  - URINE OUTPUT DECREASED [None]
